FAERS Safety Report 23479787 (Version 3)
Quarter: 2024Q3

REPORT INFORMATION
  Report Type: Spontaneous
  Country: JP (occurrence: JP)
  Receive Date: 20240205
  Receipt Date: 20240828
  Transmission Date: 20241017
  Serious: Yes (Hospitalization, Other)
  Sender: MERCK
  Company Number: JP-MSD-M2024-03715

PATIENT
  Age: 69 Year
  Sex: Female

DRUGS (3)
  1. KEYTRUDA [Suspect]
     Active Substance: PEMBROLIZUMAB
     Indication: Triple negative breast cancer
     Dosage: 200 MILLIGRAM, Q3W
     Route: 041
     Dates: start: 202310, end: 202312
  2. PACLITAXEL [Concomitant]
     Active Substance: PACLITAXEL
     Indication: Triple negative breast cancer
     Dosage: 80 MILLIGRAM/SQ. METER, QW
     Route: 041
     Dates: start: 202310, end: 202312
  3. CARBOPLATIN [Concomitant]
     Active Substance: CARBOPLATIN
     Indication: Triple negative breast cancer
     Dosage: UNK
     Route: 041
     Dates: start: 202310, end: 202312

REACTIONS (5)
  - Pulmonary embolism [Recovered/Resolved]
  - Immune-mediated enterocolitis [Recovered/Resolved]
  - Pyrexia [Recovered/Resolved]
  - Blood pressure decreased [Recovered/Resolved]
  - Immune-mediated adrenal insufficiency [Recovering/Resolving]

NARRATIVE: CASE EVENT DATE: 20231228
